FAERS Safety Report 26005913 (Version 1)
Quarter: 2025Q4

REPORT INFORMATION
  Report Type: Spontaneous
  Country: US (occurrence: None)
  Receive Date: 20251105
  Receipt Date: 20251105
  Transmission Date: 20260118
  Serious: Yes (Other)
  Sender: FDA-CTU
  Company Number: None

PATIENT
  Age: 81 Year
  Sex: Male

DRUGS (1)
  1. HUMIRA [Suspect]
     Active Substance: ADALIMUMAB
     Indication: Sympathetic ophthalmia
     Dosage: 40MG EVERY OTHER WEEK

REACTIONS (5)
  - Sunburn [None]
  - Mouth swelling [None]
  - Heavy exposure to ultraviolet light [None]
  - Sinus disorder [None]
  - Condition aggravated [None]
